FAERS Safety Report 8375023-0 (Version None)
Quarter: 2012Q2

REPORT INFORMATION
  Report Type: 
  Country: None (occurrence: None)
  Receive Date: 20120521
  Receipt Date: 20120518
  Transmission Date: 20120825
  Serious: Yes (Life-Threatening, Hospitalization, Other)
  Sender: FDA-Public Use
  Company Number: NL-ABBOTT-12P-114-0936347-00

PATIENT
  Sex: Female

DRUGS (2)
  1. PERNADOL [Concomitant]
     Indication: PRODUCT USED FOR UNKNOWN INDICATION
  2. HUMIRA [Suspect]
     Indication: INTESTINAL RESECTION
     Dates: start: 20120201

REACTIONS (1)
  - ABDOMINAL NEOPLASM [None]
